FAERS Safety Report 24449911 (Version 1)
Quarter: 2024Q4

REPORT INFORMATION
  Report Type: Spontaneous
  Country: US (occurrence: None)
  Receive Date: 20241016
  Receipt Date: 20241016
  Transmission Date: 20250114
  Serious: No
  Sender: Public
  Company Number: None

PATIENT
  Age: 67 Year
  Sex: Male
  Weight: 97 kg

DRUGS (1)
  1. LISINOPRIL [Suspect]
     Active Substance: LISINOPRIL
     Indication: Hypertension
     Dosage: FREQUENCY : DAILY;?
     Route: 048
     Dates: start: 20230715, end: 20231113

REACTIONS (8)
  - Hyperkalaemia [None]
  - Dialysis [None]
  - Asthenia [None]
  - Dyspnoea [None]
  - Feeling abnormal [None]
  - Electrocardiogram change [None]
  - Expired product administered [None]
  - Therapy cessation [None]

NARRATIVE: CASE EVENT DATE: 20231113
